FAERS Safety Report 8843558 (Version 1)
Quarter: 2012Q4

REPORT INFORMATION
  Report Type: 
  Country: NZ (occurrence: NZ)
  Receive Date: 20121016
  Receipt Date: 20121016
  Transmission Date: 20130627
  Serious: Yes (Other)
  Sender: FDA-Public Use
  Company Number: PHHY2012NZ090717

PATIENT
  Age: 67 Year
  Sex: Female

DRUGS (1)
  1. METOPROLOL [Suspect]
     Dosage: UNK UKN, UNK

REACTIONS (1)
  - Anaphylactic reaction [Unknown]
